FAERS Safety Report 6678112-1 (Version None)
Quarter: 2010Q2

REPORT INFORMATION
  Report Type: 
  Country: None (occurrence: None)
  Receive Date: 20100412
  Receipt Date: 20100329
  Transmission Date: 20101027
  Serious: Yes (Other)
  Sender: FDA-Public Use
  Company Number: US-ROCHE-680930

PATIENT
  Sex: Male
  Weight: 132 kg

DRUGS (15)
  1. PEGINTERFERON ALFA-2A [Suspect]
     Indication: HEPATITIS C
     Dosage: FORM: PFS
     Route: 058
     Dates: start: 20090101, end: 20091210
  2. RIBAVIRIN [Suspect]
     Indication: HEPATITIS C
     Dosage: DIVIDED DOSES
     Route: 048
     Dates: start: 20090101, end: 20091210
  3. INSULIN [Concomitant]
     Dosage: DRUG REPORTED: INSULIN MANTIS
  4. NOVOLOG [Concomitant]
     Route: 058
  5. LISINOPRIL [Concomitant]
     Indication: BLOOD PRESSURE
     Route: 048
  6. BUSPAR [Concomitant]
     Indication: DEPRESSION
     Route: 048
  7. HYDROCHLOROTHIAZIDE [Concomitant]
     Indication: BLOOD PRESSURE
     Route: 048
  8. NORVASC [Concomitant]
     Indication: BLOOD PRESSURE
     Route: 048
  9. ASPIRIN [Concomitant]
  10. ALBUTEROL [Concomitant]
  11. COSOPT [Concomitant]
     Indication: GLAUCOMA
  12. TRAVATAN [Concomitant]
     Indication: GLAUCOMA
  13. ADVAIR DISKUS 100/50 [Concomitant]
  14. TOPROL-XL [Concomitant]
     Indication: BLOOD PRESSURE
  15. VICODIN [Concomitant]
     Indication: BACK PAIN

REACTIONS (2)
  - MUSCLE RUPTURE [None]
  - PAIN [None]
